FAERS Safety Report 14393294 (Version 1)
Quarter: 2018Q1

REPORT INFORMATION
  Report Type: Spontaneous
  Country: CA (occurrence: CA)
  Receive Date: 20180114
  Receipt Date: 20180114
  Transmission Date: 20180509
  Serious: Yes (Other)
  Sender: FDA-Public Use
  Company Number: None

PATIENT
  Age: 60 Year
  Sex: Female
  Weight: 56.25 kg

DRUGS (3)
  1. CALCIUM [Concomitant]
     Active Substance: CALCIUM
  2. VITAMIN D [Concomitant]
     Active Substance: CHOLECALCIFEROL
  3. PROLIA [Suspect]
     Active Substance: DENOSUMAB
     Dosage: SUBCUTANEOUS; EVERY 6 MONTHS?
     Route: 058

REACTIONS (1)
  - Rash [None]
